FAERS Safety Report 17565960 (Version 1)
Quarter: 2020Q1

REPORT INFORMATION
  Report Type: Spontaneous
  Country: US (occurrence: US)
  Receive Date: 20200314
  Receipt Date: 20200314
  Transmission Date: 20200409
  Serious: Yes (Hospitalization)
  Sender: FDA-Public Use
  Company Number: None

PATIENT
  Age: 65 Year
  Sex: Female
  Weight: 78 kg

DRUGS (8)
  1. ANASTROZOLE. [Concomitant]
     Active Substance: ANASTROZOLE
  2. MULTIVITAMINS [Concomitant]
     Active Substance: VITAMINS
  3. ASPIRIN. [Suspect]
     Active Substance: ASPIRIN
     Dates: end: 20191126
  4. OMEPRAZOLEE [Concomitant]
  5. MELATONIN [Concomitant]
     Active Substance: MELATONIN
  6. ACETAMINOPHEN. [Concomitant]
     Active Substance: ACETAMINOPHEN
  7. ATROVASTATIN [Concomitant]
     Active Substance: ATORVASTATIN CALCIUM
  8. LISINOPRIL. [Concomitant]
     Active Substance: LISINOPRIL

REACTIONS (9)
  - Gait disturbance [None]
  - Facet joint syndrome [None]
  - Crying [None]
  - Musculoskeletal pain [None]
  - Pain [None]
  - Spondylolisthesis [None]
  - Posture abnormal [None]
  - Degenerative bone disease [None]
  - Spinal stenosis [None]

NARRATIVE: CASE EVENT DATE: 20191126
